FAERS Safety Report 7597374-X (Version None)
Quarter: 2011Q3

REPORT INFORMATION
  Report Type: 
  Country: None (occurrence: None)
  Receive Date: 20110708
  Receipt Date: 20110628
  Transmission Date: 20111222
  Serious: Yes (Other)
  Sender: FDA-Public Use
  Company Number: US-NOVOPROD-330861

PATIENT
  Sex: Female
  Weight: 77.098 kg

DRUGS (2)
  1. VICTOZA [Suspect]
     Indication: TYPE 2 DIABETES MELLITUS
     Dosage: 1.8 MG, QD
     Route: 058
     Dates: start: 20110301, end: 20110601
  2. VICTOZA [Suspect]
     Indication: WEIGHT DECREASED

REACTIONS (1)
  - PANCREATITIS [None]
